FAERS Safety Report 25203380 (Version 1)
Quarter: 2025Q2

REPORT INFORMATION
  Report Type: Spontaneous
  Country: US (occurrence: None)
  Receive Date: 20250416
  Receipt Date: 20250416
  Transmission Date: 20250717
  Serious: Yes (Other)
  Sender: FDA-CTU
  Company Number: None

PATIENT
  Age: 62 Year
  Sex: Female
  Weight: 55.1 kg

DRUGS (2)
  1. CALCIUM CHLORIDE [Suspect]
     Active Substance: CALCIUM CHLORIDE
  2. EPINEPHRINE [Suspect]
     Active Substance: EPINEPHRINE

REACTIONS (2)
  - Product selection error [None]
  - Wrong product administered [None]

NARRATIVE: CASE EVENT DATE: 20250408
